FAERS Safety Report 7756962-8 (Version None)
Quarter: 2011Q3

REPORT INFORMATION
  Report Type: 
  Country: None (occurrence: None)
  Receive Date: 20110916
  Receipt Date: 20110916
  Transmission Date: 20111222
  Serious: Yes (Hospitalization)
  Sender: FDA-Public Use
  Company Number: None

PATIENT
  Sex: Female
  Weight: 53.8 kg

DRUGS (3)
  1. DEXAMETHASONE [Concomitant]
  2. KEPPRA [Concomitant]
  3. FLUCYTOSINE [Suspect]
     Indication: GLIOBLASTOMA
     Dosage: 2250 MG
     Route: 048
     Dates: start: 20110820, end: 20110826

REACTIONS (5)
  - CONVULSION [None]
  - DEPRESSED LEVEL OF CONSCIOUSNESS [None]
  - COGNITIVE DISORDER [None]
  - DYSPHAGIA [None]
  - SPEECH DISORDER [None]
